FAERS Safety Report 10142896 (Version 2)
Quarter: 2014Q2

REPORT INFORMATION
  Report Type: Spontaneous
  Country: US (occurrence: US)
  Receive Date: 20140430
  Receipt Date: 20140625
  Transmission Date: 20141212
  Serious: Yes (Hospitalization, Other)
  Sender: FDA-Public Use
  Company Number: US-BAYER-2014-062548

PATIENT
  Age: 29 Year
  Sex: Female
  Weight: 63.49 kg

DRUGS (11)
  1. YAZ [Suspect]
     Indication: CONTRACEPTION
     Dosage: UNK
     Dates: start: 201008, end: 201105
  2. YAZ [Suspect]
     Indication: ACNE
  3. CELEXA [Concomitant]
     Indication: DEPRESSION
     Dosage: UNK
     Dates: start: 201107
  4. PROVENTIL HFA [Concomitant]
     Indication: ASTHMA
     Dosage: 2 PUFFS EVERY 4-6 HOURS AS NEEDED
  5. LORTAB [Concomitant]
     Dosage: 5-500 MG TABS TAKE 1 TAB EVERY 6 HOURS AS NEEDED
  6. TRAMADOL [Concomitant]
  7. NORCO [Concomitant]
     Indication: PAIN
  8. EFFEXOR [Concomitant]
  9. CYMBALTA [Concomitant]
     Indication: DEPRESSION
     Dosage: 60 MG, QD
  10. KEFLEX [Concomitant]
  11. ALEVE LIQUID GELS [Concomitant]

REACTIONS (9)
  - Deep vein thrombosis [None]
  - Thrombosis [None]
  - Pain [None]
  - Depression [None]
  - Injury [None]
  - Mental disorder [None]
  - Pain [None]
  - Peripheral artery thrombosis [None]
  - Subclavian artery thrombosis [None]
